FAERS Safety Report 26051846 (Version 1)
Quarter: 2025Q4

REPORT INFORMATION
  Report Type: Report from Study
  Country: US (occurrence: US)
  Receive Date: 20251117
  Receipt Date: 20251117
  Transmission Date: 20260117
  Serious: Yes (Other)
  Sender: ABBVIE
  Company Number: US-ABBVIE-6505080

PATIENT
  Age: 67 Year
  Sex: Male

DRUGS (1)
  1. RINVOQ [Suspect]
     Active Substance: UPADACITINIB
     Indication: Ankylosing spondylitis
     Route: 048
     Dates: start: 20241211

REACTIONS (3)
  - Spinal nerve stimulator implantation [Unknown]
  - Fatigue [Not Recovered/Not Resolved]
  - Medical device site paraesthesia [Unknown]

NARRATIVE: CASE EVENT DATE: 20250901
